FAERS Safety Report 22605456 (Version 1)
Quarter: 2023Q2

REPORT INFORMATION
  Report Type: Report from Study
  Country: US (occurrence: US)
  Receive Date: 20230615
  Receipt Date: 20230615
  Transmission Date: 20230721
  Serious: Yes (Hospitalization, Other)
  Sender: FDA-Public Use
  Company Number: US-JAZZ-2023-US-003712

PATIENT
  Sex: Male

DRUGS (8)
  1. XYREM [Suspect]
     Active Substance: SODIUM OXYBATE
     Indication: Narcolepsy
     Dosage: 4.5G TWICE A NIGHT
  2. XYREM [Suspect]
     Active Substance: SODIUM OXYBATE
     Indication: Cataplexy
  3. XYREM [Suspect]
     Active Substance: SODIUM OXYBATE
     Indication: Somnolence
  4. NUVIGIL [Concomitant]
     Active Substance: ARMODAFINIL
     Dosage: 0000
     Dates: start: 20150929
  5. CARBIDOPA\LEVODOPA [Concomitant]
     Active Substance: CARBIDOPA\LEVODOPA
     Dosage: 0000
     Dates: start: 20150930
  6. FLUOXETINE HYDROCHLORIDE [Concomitant]
     Active Substance: FLUOXETINE HYDROCHLORIDE
     Dosage: 0000
     Dates: start: 20150930
  7. MUCINEX [Concomitant]
     Active Substance: GUAIFENESIN
     Dosage: 0000
     Dates: start: 20220712
  8. TYLENOL EXTRA STRENGTH [Concomitant]
     Active Substance: ACETAMINOPHEN
     Dosage: CAPLET
     Dates: start: 20220712

REACTIONS (4)
  - Catheterisation cardiac [Unknown]
  - Vascular graft [Unknown]
  - Nasopharyngitis [Recovered/Resolved]
  - Product administration interrupted [Unknown]
